FAERS Safety Report 7439825-7 (Version None)
Quarter: 2011Q2

REPORT INFORMATION
  Report Type: 
  Country: None (occurrence: None)
  Receive Date: 20110427
  Receipt Date: 20110418
  Transmission Date: 20111010
  Serious: Yes (Hospitalization, Other)
  Sender: FDA-Public Use
  Company Number: GB-TEVA-274575ISR

PATIENT
  Age: 35 Year
  Sex: Male

DRUGS (2)
  1. PREDNISOLONE [Suspect]
     Indication: ASTHMA
     Dosage: 30-60 MG
  2. FLUTICASONE PROPIONATE [Suspect]

REACTIONS (3)
  - EPIDURAL LIPOMATOSIS [None]
  - WEIGHT INCREASED [None]
  - BACK PAIN [None]
